FAERS Safety Report 6680659-9 (Version None)
Quarter: 2010Q2

REPORT INFORMATION
  Report Type: 
  Country: None (occurrence: None)
  Receive Date: 20100414
  Receipt Date: 20100405
  Transmission Date: 20101027
  Serious: Yes (Other)
  Sender: FDA-Public Use
  Company Number: US-JNJFOC-20100401881

PATIENT
  Sex: Female
  Weight: 55.34 kg

DRUGS (3)
  1. DURAGESIC-100 [Suspect]
     Indication: BACK PAIN
     Route: 062
  2. DURAGESIC-100 [Suspect]
     Dosage: NDC 50458-092-05
     Route: 062
  3. PERCOCET [Concomitant]
     Dosage: 4 TIMES A DAY AS NEEDED
     Route: 048

REACTIONS (3)
  - DRUG DOSE OMISSION [None]
  - PRODUCT QUALITY ISSUE [None]
  - TRIGEMINAL NEURALGIA [None]
